FAERS Safety Report 13525824 (Version 1)
Quarter: 2017Q2

REPORT INFORMATION
  Report Type: Spontaneous
  Country: US (occurrence: US)
  Receive Date: 20170508
  Receipt Date: 20170508
  Transmission Date: 20170830
  Serious: Yes (Hospitalization)
  Sender: FDA-Public Use
  Company Number: None

PATIENT
  Age: 81 Year
  Sex: Male

DRUGS (1)
  1. LEDIPASVIR/SOFOSBUVIR [Suspect]
     Active Substance: LEDIPASVIR\SOFOSBUVIR
     Indication: HEPATITIS C
     Dosage: DOSE AMOUNT - 90/400 MG?
     Route: 048
     Dates: start: 20170322, end: 20170502

REACTIONS (4)
  - Swelling face [None]
  - Angioedema [None]
  - Dyspnoea exertional [None]
  - Nephritis [None]

NARRATIVE: CASE EVENT DATE: 20170502
